FAERS Safety Report 13439748 (Version 4)
Quarter: 2017Q3

REPORT INFORMATION
  Report Type: Spontaneous
  Country: US (occurrence: US)
  Receive Date: 20170413
  Receipt Date: 20170718
  Transmission Date: 20171127
  Serious: Yes (Hospitalization)
  Sender: FDA-Public Use
  Company Number: US-ELI_LILLY_AND_COMPANY-US201704002651

PATIENT
  Sex: Female

DRUGS (2)
  1. HUMATROPE [Suspect]
     Active Substance: SOMATROPIN
     Indication: HYPOPITUITARISM
  2. HUMATROPE [Suspect]
     Active Substance: SOMATROPIN
     Indication: GROWTH HORMONE DEFICIENCY
     Dosage: 0.2 MG, BID
     Route: 058

REACTIONS (6)
  - Wrong technique in product usage process [Unknown]
  - Drug dose omission [Unknown]
  - Gastroenteritis norovirus [Recovering/Resolving]
  - Seizure [Recovering/Resolving]
  - Malaise [Unknown]
  - Hypoglycaemia [Unknown]
